FAERS Safety Report 13694198 (Version 1)
Quarter: 2017Q2

REPORT INFORMATION
  Report Type: Spontaneous
  Country: US (occurrence: US)
  Receive Date: 20170627
  Receipt Date: 20170627
  Transmission Date: 20170830
  Serious: Yes (Disabling)
  Sender: FDA-Public Use
  Company Number: None

PATIENT
  Age: 51 Year
  Sex: Male
  Weight: 101.2 kg

DRUGS (1)
  1. CLONAZAPAM [Suspect]
     Active Substance: CLONAZEPAM
     Indication: INSOMNIA
     Dosage: ?          OTHER STRENGTH:MG;QUANTITY:1 TABLET(S);?DAILY ORAL
     Route: 048
     Dates: start: 20140112, end: 20140501

REACTIONS (5)
  - Impaired work ability [None]
  - Anxiety [None]
  - Depression [None]
  - Malaise [None]
  - Insomnia [None]

NARRATIVE: CASE EVENT DATE: 20140501
